FAERS Safety Report 19116870 (Version 1)
Quarter: 2021Q2

REPORT INFORMATION
  Report Type: Spontaneous
  Country: US (occurrence: US)
  Receive Date: 20210409
  Receipt Date: 20210409
  Transmission Date: 20210717
  Serious: Yes (Hospitalization)
  Sender: FDA-Public Use
  Company Number: US-PROCTER_AND_GAMBLE-PH21002562

PATIENT
  Age: 78 Year
  Sex: Female

DRUGS (2)
  1. VICKS VAPORUB [Suspect]
     Active Substance: CAMPHOR (SYNTHETIC)\EUCALYPTUS OIL\MENTHOL
     Dosage: UNK (1/4 OF A FINGER TIP EVERYDAY OR EVERY OTHER DAY)
     Route: 045
  2. VICKS VAPORUB [Suspect]
     Active Substance: CAMPHOR (SYNTHETIC)\EUCALYPTUS OIL\MENTHOL
     Dosage: UNK
     Route: 061

REACTIONS (10)
  - Asthenia [Recovering/Resolving]
  - Fatigue [Recovering/Resolving]
  - Nasal septum perforation [Not Recovered/Not Resolved]
  - Incorrect route of product administration [Unknown]
  - Product administered at inappropriate site [Unknown]
  - Blood count abnormal [Unknown]
  - Epistaxis [Recovered/Resolved]
  - Exposure via inhalation [Unknown]
  - Haematemesis [Unknown]
  - Heart rate decreased [Unknown]

NARRATIVE: CASE EVENT DATE: 202008
